FAERS Safety Report 12906490 (Version 1)
Quarter: 2016Q4

REPORT INFORMATION
  Report Type: Report from Study
  Country: US (occurrence: US)
  Receive Date: 20161103
  Receipt Date: 20161103
  Transmission Date: 20170207
  Serious: Yes (Other)
  Sender: FDA-Public Use
  Company Number: US-AMGEN-USASL2016126365

PATIENT
  Age: 70 Year
  Sex: Female

DRUGS (1)
  1. NPLATE [Suspect]
     Active Substance: ROMIPLOSTIM
     Indication: IMMUNE THROMBOCYTOPENIC PURPURA
     Dosage: 50 MUG, QWK
     Route: 065

REACTIONS (8)
  - Insomnia [Unknown]
  - Myalgia [Unknown]
  - Pain in extremity [Recovering/Resolving]
  - Parkinson^s disease [Unknown]
  - Dyspepsia [Unknown]
  - Nasopharyngitis [Unknown]
  - Arthralgia [Recovering/Resolving]
  - Platelet count abnormal [Unknown]
